FAERS Safety Report 10683328 (Version 1)
Quarter: 2014Q4

REPORT INFORMATION
  Report Type: Spontaneous
  Country: US (occurrence: None)
  Receive Date: 20141229
  Receipt Date: 20141229
  Transmission Date: 20150529
  Serious: No
  Sender: FDA-Public Use
  Company Number: None

PATIENT
  Age: 13 Month
  Sex: Female
  Weight: 9.07 kg

DRUGS (1)
  1. CEFPROZIL. [Suspect]
     Active Substance: CEFPROZIL
     Indication: EAR INFECTION
     Dosage: HALF TEASPOON
     Route: 048
     Dates: start: 20141223, end: 20141225

REACTIONS (1)
  - Rash [None]

NARRATIVE: CASE EVENT DATE: 20141225
